FAERS Safety Report 6356292-5 (Version None)
Quarter: 2009Q3

REPORT INFORMATION
  Report Type: 
  Country: None (occurrence: None)
  Receive Date: 20090915
  Receipt Date: 20090908
  Transmission Date: 20100115
  Serious: Yes (Hospitalization)
  Sender: FDA-Public Use
  Company Number: US-ASTRAZENECA-2009SE12038

PATIENT
  Age: 745 Month
  Sex: Female
  Weight: 49.9 kg

DRUGS (2)
  1. PULMICORT-100 [Suspect]
     Indication: ASTHMA
     Dosage: 0.5 MG BID (RESPULES)
     Route: 055
  2. PULMICORT-100 [Suspect]
     Dosage: 800 MCG BID (TURBUHALER)
     Route: 055

REACTIONS (2)
  - BRONCHITIS [None]
  - PNEUMONIA [None]
